FAERS Safety Report 6257299-9 (Version None)
Quarter: 2009Q3

REPORT INFORMATION
  Report Type: 
  Country: None (occurrence: None)
  Receive Date: 20090706
  Receipt Date: 20090624
  Transmission Date: 20100115
  Serious: Yes (Death)
  Sender: FDA-Public Use
  Company Number: JP-PFIZER INC-2009233199

PATIENT
  Age: 86 Year

DRUGS (11)
  1. ZITHROMAC SR [Suspect]
     Dosage: 2 G, 1X/DAY
     Route: 048
     Dates: start: 20090617, end: 20090618
  2. AMARYL [Concomitant]
     Route: 048
  3. ACTOS [Concomitant]
     Route: 048
  4. MUCOSAL [Concomitant]
     Route: 048
  5. METFORMIN HCL [Concomitant]
     Route: 048
  6. FLIVAS [Concomitant]
     Route: 048
  7. ALESION [Concomitant]
     Route: 048
  8. ROHYPNOL [Concomitant]
     Route: 048
  9. HIRNAMIN [Concomitant]
     Route: 048
  10. RISPERDAL [Concomitant]
     Route: 048
  11. SERENACE [Concomitant]

REACTIONS (1)
  - BRONCHOPNEUMONIA [None]
